FAERS Safety Report 4448068-0 (Version None)
Quarter: 2004Q3

REPORT INFORMATION
  Report Type: 
  Country: None (occurrence: None)
  Receive Date: 20040812
  Receipt Date: 20040610
  Transmission Date: 20050211
  Serious: No
  Sender: FDA-Public Use
  Company Number: USA040669794

PATIENT
  Sex: Male

DRUGS (3)
  1. CIALIS [Suspect]
     Indication: ERECTILE DYSFUNCTION
     Dosage: 20 MG DAY
     Dates: start: 20040501
  2. VITAMIN E [Concomitant]
  3. MULTI-VITAMIN [Concomitant]

REACTIONS (2)
  - FLUSHING [None]
  - MYALGIA [None]
